FAERS Safety Report 8952971 (Version 2)
Quarter: 2013Q1

REPORT INFORMATION
  Report Type: Spontaneous
  Country: DE (occurrence: DE)
  Receive Date: 20121203
  Receipt Date: 20130114
  Transmission Date: 20140127
  Serious: Yes (Death, Hospitalization)
  Sender: FDA-Public Use
  Company Number: DE-AMGEN-DEUSP2012076811

PATIENT
  Age: 49 Year
  Sex: Female

DRUGS (1)
  1. NEUPOGEN [Suspect]
     Indication: PRODUCT USED FOR UNKNOWN INDICATION
     Dosage: 480 MUG, UNK
     Route: 065
     Dates: start: 200907

REACTIONS (2)
  - Multi-organ failure [Fatal]
  - Sepsis [Fatal]
